FAERS Safety Report 9727577 (Version 1)
Quarter: 2013Q4

REPORT INFORMATION
  Report Type: Report from Study
  Country: US (occurrence: US)
  Receive Date: 20131203
  Receipt Date: 20131203
  Transmission Date: 20140711
  Serious: Yes (Other)
  Sender: FDA-Public Use
  Company Number: US-ABBVIE-13P-163-1174299-00

PATIENT
  Age: 39 Year
  Sex: Male
  Weight: 104.42 kg

DRUGS (2)
  1. HUMIRA [Suspect]
     Indication: PSORIATIC ARTHROPATHY
     Dates: start: 2011, end: 201306
  2. HUMIRA [Suspect]
     Indication: PSORIASIS

REACTIONS (2)
  - Tuberculin test positive [Recovered/Resolved]
  - Mycobacterium tuberculosis complex test positive [Recovered/Resolved]
